FAERS Safety Report 4662363-1 (Version None)
Quarter: 2005Q2

REPORT INFORMATION
  Report Type: 
  Country: None (occurrence: None)
  Receive Date: 20050516
  Receipt Date: 20050502
  Transmission Date: 20051028
  Serious: Yes (Other)
  Sender: FDA-Public Use
  Company Number: US-JNJFOC-20050501178

PATIENT
  Sex: Male
  Weight: 124.29 kg

DRUGS (2)
  1. DURAGESIC-100 [Suspect]
     Route: 062
     Dates: start: 20040101
  2. DITROPAN [Concomitant]
     Route: 049
     Dates: start: 20050301

REACTIONS (2)
  - HYPERHIDROSIS [None]
  - PROSTATE CANCER [None]
